FAERS Safety Report 9029924 (Version 1)
Quarter: 2013Q1

REPORT INFORMATION
  Report Type: Report from Study
  Country: US (occurrence: US)
  Receive Date: 20130124
  Receipt Date: 20130124
  Transmission Date: 20140127
  Serious: Yes (Other)
  Sender: FDA-Public Use
  Company Number: US-US-EMD SERONO, INC.-7188437

PATIENT
  Sex: Female

DRUGS (2)
  1. REBIF [Suspect]
     Indication: MULTIPLE SCLEROSIS
     Route: 058
     Dates: start: 2010, end: 2010
  2. REBIF [Suspect]
     Route: 058
     Dates: start: 20120502, end: 201212

REACTIONS (5)
  - Cervical vertebral fracture [Unknown]
  - Cyst [Unknown]
  - Fallopian tube cyst [Unknown]
  - Fall [Unknown]
  - Muscular weakness [Unknown]
